FAERS Safety Report 7435943-8 (Version None)
Quarter: 2011Q2

REPORT INFORMATION
  Report Type: 
  Country: None (occurrence: None)
  Receive Date: 20110418
  Receipt Date: 20110404
  Transmission Date: 20111010
  Serious: Yes (Other)
  Sender: FDA-Public Use
  Company Number: 1000012683

PATIENT
  Age: 37 Year
  Sex: Male

DRUGS (2)
  1. LEXAPRO [Suspect]
     Indication: AFFECTIVE DISORDER
     Dosage: 20 MG (20 MG, 1 IN 1 D), ORAL
     Route: 048
     Dates: start: 20070101, end: 20100603
  2. LEXAPRO [Suspect]
     Indication: AFFECTIVE DISORDER
     Dosage: ORAL
     Route: 048
     Dates: start: 20100901

REACTIONS (1)
  - SPERMATOGENESIS ABNORMAL [None]
